FAERS Safety Report 4870215-7 (Version None)
Quarter: 2005Q4

REPORT INFORMATION
  Report Type: 
  Country: None (occurrence: None)
  Receive Date: 20051228
  Receipt Date: 20051214
  Transmission Date: 20060501
  Serious: Yes (Hospitalization)
  Sender: FDA-Public Use
  Company Number: 2005PV004348

PATIENT
  Age: 50 Year
  Sex: Female

DRUGS (15)
  1. SYMLIN [Suspect]
     Indication: DIABETES MELLITUS INSULIN-DEPENDENT
     Dosage: SC
     Route: 058
     Dates: start: 20051001
  2. NOVOLOG [Concomitant]
  3. ASPIRIN [Concomitant]
  4. PLAVIX [Concomitant]
  5. CRESTOR [Concomitant]
  6. TOPAMAX [Concomitant]
  7. TORPOL XL [Concomitant]
  8. NEURONTIN [Concomitant]
  9. OXYCONTIN [Concomitant]
  10. SYNTHROID [Concomitant]
  11. XANAX [Concomitant]
  12. LEXAPRO [Concomitant]
  13. WELLBUTRIN [Concomitant]
  14. SEROQUEL [Concomitant]
  15. ACTONEL [Concomitant]

REACTIONS (19)
  - ANOXIC ENCEPHALOPATHY [None]
  - APALLIC SYNDROME [None]
  - BLOOD CULTURE POSITIVE [None]
  - BLOOD GLUCOSE FLUCTUATION [None]
  - CSF TEST ABNORMAL [None]
  - CSF WHITE BLOOD CELL COUNT POSITIVE [None]
  - CULTURE URINE POSITIVE [None]
  - DEVICE FAILURE [None]
  - ESCHERICHIA INFECTION [None]
  - GRAND MAL CONVULSION [None]
  - HYPOGLYCAEMIA [None]
  - KLEBSIELLA INFECTION [None]
  - LETHARGY [None]
  - LYMPHOCYTOSIS [None]
  - MICROANGIOPATHY [None]
  - REFUSAL OF TREATMENT BY RELATIVE [None]
  - SINUS TACHYCARDIA [None]
  - STAPHYLOCOCCAL INFECTION [None]
  - STATUS EPILEPTICUS [None]
